FAERS Safety Report 7528465-7 (Version None)
Quarter: 2011Q2

REPORT INFORMATION
  Report Type: 
  Country: None (occurrence: None)
  Receive Date: 20110607
  Receipt Date: 20101102
  Transmission Date: 20111010
  Serious: No
  Sender: FDA-Public Use
  Company Number: US-ASTRAZENECA-2010SE52807

PATIENT
  Sex: Male

DRUGS (7)
  1. ACYCLOVIR [Concomitant]
     Indication: PROPHYLAXIS
     Dosage: UNKNOWN
  2. EFFEXOR XR [Concomitant]
     Dosage: UNKNOWN
  3. CONCERTA [Concomitant]
     Dosage: UNKNOWN
  4. NASONEX [Concomitant]
     Dosage: UNKNOWN
  5. SIMVASTATIN [Concomitant]
     Dosage: UNKNOWN
  6. PRILOSEC OTC [Suspect]
     Indication: DYSPEPSIA
     Route: 048
     Dates: start: 20100201, end: 20101020
  7. ATRIPLA [Concomitant]
     Dosage: UNKNOWN

REACTIONS (3)
  - DYSPEPSIA [None]
  - CONDITION AGGRAVATED [None]
  - NAUSEA [None]
